FAERS Safety Report 24849892 (Version 1)
Quarter: 2025Q1

REPORT INFORMATION
  Report Type: Spontaneous
  Country: US (occurrence: US)
  Receive Date: 20250116
  Receipt Date: 20250116
  Transmission Date: 20250408
  Serious: No
  Sender: INCYTE
  Company Number: US-INCYTE CORPORATION-2025IN000089

PATIENT

DRUGS (2)
  1. JAKAFI [Suspect]
     Active Substance: RUXOLITINIB
     Indication: Chronic graft versus host disease
     Route: 065
  2. REZUROCK [Concomitant]
     Active Substance: BELUMOSUDIL
     Indication: Product used for unknown indication
     Route: 065

REACTIONS (2)
  - Mouth ulceration [Unknown]
  - Illness [Unknown]
